FAERS Safety Report 20915157 (Version 1)
Quarter: 2022Q2

REPORT INFORMATION
  Report Type: Spontaneous
  Country: US (occurrence: US)
  Receive Date: 20220604
  Receipt Date: 20220604
  Transmission Date: 20220721
  Serious: No
  Sender: FDA-Public Use
  Company Number: US-SA-SAC20220527000153

PATIENT
  Age: 5 Year
  Sex: Male

DRUGS (1)
  1. LUMIZYME [Suspect]
     Active Substance: ALGLUCOSIDASE ALFA
     Indication: Glycogen storage disease type II
     Dosage: 650 MG, QW
     Route: 042
     Dates: start: 20210713

REACTIONS (1)
  - Catheter placement [Unknown]

NARRATIVE: CASE EVENT DATE: 20220517
